FAERS Safety Report 24669954 (Version 5)
Quarter: 2024Q4

REPORT INFORMATION
  Report Type: Report from Study
  Country: ES (occurrence: ES)
  Receive Date: 20241127
  Receipt Date: 20241225
  Transmission Date: 20250114
  Serious: Yes (Death, Hospitalization, Other)
  Sender: TAKEDA
  Company Number: ES-TAKEDA-2024TUS118040

PATIENT

DRUGS (2)
  1. FRUQUINTINIB [Suspect]
     Active Substance: FRUQUINTINIB
     Indication: Colorectal cancer metastatic
     Dosage: 5 MILLIGRAM
  2. FRUQUINTINIB [Suspect]
     Active Substance: FRUQUINTINIB
     Dosage: 4 MILLIGRAM

REACTIONS (8)
  - Metastases to peritoneum [Fatal]
  - Metastases to liver [Fatal]
  - Colorectal cancer metastatic [Fatal]
  - Disorientation [Recovered/Resolved]
  - Aggression [Unknown]
  - Nausea [Recovered/Resolved]
  - Vomiting [Recovered/Resolved]
  - Asthenia [Recovered/Resolved]
